FAERS Safety Report 6376082-7 (Version None)
Quarter: 2009Q3

REPORT INFORMATION
  Report Type: 
  Country: None (occurrence: None)
  Receive Date: 20090918
  Receipt Date: 20090911
  Transmission Date: 20100115
  Serious: Yes (Other)
  Sender: FDA-Public Use
  Company Number: A20090717-001

PATIENT
  Age: 45 Year
  Sex: Male

DRUGS (2)
  1. PITAVASTATIN CALCIUM [Suspect]
     Indication: HYPERCHOLESTEROLAEMIA
     Dosage: 2 MG, PO
     Route: 048
     Dates: start: 20090528, end: 20090827
  2. RABEPRAZOLE SODIUM [Suspect]
     Dosage: PO
     Route: 048
     Dates: start: 20090825

REACTIONS (3)
  - ABDOMINAL DISCOMFORT [None]
  - HEPATIC FUNCTION ABNORMAL [None]
  - MALAISE [None]
